FAERS Safety Report 8710148 (Version 3)
Quarter: 2013Q4

REPORT INFORMATION
  Report Type: Spontaneous
  Country: US (occurrence: US)
  Receive Date: 20120806
  Receipt Date: 20131101
  Transmission Date: 20140711
  Serious: No
  Sender: FDA-Public Use
  Company Number: US-009507513-1207USA009539

PATIENT
  Age: 88 Year
  Sex: 0

DRUGS (3)
  1. DULERA [Suspect]
     Indication: ASTHMA
  2. PREDNISONE [Concomitant]
  3. ADVAIR [Suspect]

REACTIONS (1)
  - Gastrooesophageal reflux disease [Unknown]
